FAERS Safety Report 25256614 (Version 2)
Quarter: 2025Q2

REPORT INFORMATION
  Report Type: Spontaneous
  Country: CN (occurrence: CN)
  Receive Date: 20250430
  Receipt Date: 20250507
  Transmission Date: 20250716
  Serious: Yes (Disabling, Other)
  Sender: ROCHE
  Company Number: CN-ROCHE-10000266647

PATIENT
  Age: 87 Year
  Sex: Female

DRUGS (9)
  1. BALOXAVIR MARBOXIL [Suspect]
     Active Substance: BALOXAVIR MARBOXIL
     Indication: Influenza
     Route: 048
     Dates: start: 20241224, end: 20241224
  2. ATORVASTATIN [Concomitant]
     Active Substance: ATORVASTATIN
  3. ISOSORBIDE MONONITRATE [Concomitant]
     Active Substance: ISOSORBIDE MONONITRATE
  4. INDOBUFEN [Concomitant]
     Active Substance: INDOBUFEN
  5. BENIDIPINE [Concomitant]
     Active Substance: BENIDIPINE
  6. RABEPRAZOLE [Concomitant]
     Active Substance: RABEPRAZOLE
  7. HERBALS [Concomitant]
     Active Substance: HERBALS
  8. JIN SHUI BAO [Concomitant]
  9. ALLISARTAN [Concomitant]

REACTIONS (9)
  - Hepatic failure [Recovering/Resolving]
  - Hepatic encephalopathy [Unknown]
  - Coagulopathy [Unknown]
  - Hepatorenal syndrome [Unknown]
  - Septic shock [Unknown]
  - Jaundice cholestatic [Unknown]
  - Biliary obstruction [Unknown]
  - Bile duct stone [Unknown]
  - Cholangitis [Unknown]

NARRATIVE: CASE EVENT DATE: 20241225
